FAERS Safety Report 8853754 (Version 5)
Quarter: 2013Q1

REPORT INFORMATION
  Report Type: Report from Study
  Country: US (occurrence: US)
  Receive Date: 20121022
  Receipt Date: 20130327
  Transmission Date: 20140127
  Serious: Yes (Hospitalization, Other)
  Sender: FDA-Public Use
  Company Number: US-PFIZER INC-2012256644

PATIENT
  Age: 68 Year
  Sex: Male
  Weight: 77 kg

DRUGS (18)
  1. OXALIPLATIN [Suspect]
     Indication: OESOPHAGEAL ADENOCARCINOMA
     Dosage: 85 MG/M2, ON DAY 1 EVERY 14 DAYS
     Route: 042
     Dates: start: 20120507, end: 20120925
  2. OXALIPLATIN [Suspect]
     Dosage: 85 MG/M2, ON DAY 1 EVERY 14 DAYS
     Route: 042
     Dates: start: 20121019, end: 20121203
  3. FLUOROURACIL [Suspect]
     Indication: OESOPHAGEAL ADENOCARCINOMA
     Dosage: 400 MG/M2, ON DAY 1 EVERY 14 DAYS
     Route: 040
     Dates: start: 20120507, end: 20120925
  4. FLUOROURACIL [Suspect]
     Dosage: 2400 MG/M2, ON DAYS 1 AND 2 EVERY 14 DAYS
     Route: 042
     Dates: start: 20120507, end: 20120925
  5. FLUOROURACIL [Suspect]
     Dosage: 400 MG/M2, ON DAY 1 EVERY 14 DAYS
     Route: 040
     Dates: start: 20121019, end: 20121203
  6. FLUOROURACIL [Suspect]
     Dosage: 2400 MG/M2, ON DAYS 1 AND 2 EVERY 14 DAYS
     Route: 042
     Dates: start: 20121019, end: 20121203
  7. LEUCOVORIN [Suspect]
     Indication: OESOPHAGEAL ADENOCARCINOMA
     Dosage: 400 MG/M2, ON DAY 1 EVERY 14 DAYS
     Route: 042
     Dates: start: 20120507, end: 20120925
  8. LEUCOVORIN [Suspect]
     Dosage: 400 MG/M2, ON DAY 1 EVERY 14 DAYS
     Route: 042
     Dates: start: 20121019, end: 20121203
  9. BLINDED THERAPY [Suspect]
     Indication: OESOPHAGEAL ADENOCARCINOMA
     Dosage: UNK
     Route: 042
     Dates: start: 20120507, end: 20120925
  10. BLINDED THERAPY [Suspect]
     Dosage: UNK
     Route: 042
     Dates: start: 20121019, end: 20121203
  11. ADVAIR [Concomitant]
     Dosage: UNK
  12. SPIRIVA [Concomitant]
     Dosage: UNK
  13. ASA [Concomitant]
     Dosage: UNK
  14. CRESTOR [Concomitant]
     Dosage: UNK
  15. NEXIUM [Concomitant]
     Dosage: UNK
  16. AMBIEN [Concomitant]
     Dosage: UNK
  17. PROCARDIA [Concomitant]
     Dosage: UNK
  18. K-PHOS [Concomitant]
     Dosage: UNK

REACTIONS (2)
  - Lung infection [Not Recovered/Not Resolved]
  - Chronic obstructive pulmonary disease [Recovered/Resolved]
